FAERS Safety Report 9332073 (Version 1)
Quarter: 2013Q2

REPORT INFORMATION
  Report Type: Report from Study
  Country: NL (occurrence: NL)
  Receive Date: 20130605
  Receipt Date: 20130605
  Transmission Date: 20140414
  Serious: Yes (Death, Hospitalization)
  Sender: FDA-Public Use
  Company Number: NL-TEVA-409822ISR

PATIENT
  Age: 70 Year
  Sex: Female

DRUGS (7)
  1. MYOCET [Suspect]
  2. PACLITAXEL [Suspect]
     Indication: BREAST CANCER METASTATIC
     Dosage: 118 MILLIGRAM DAILY;
     Route: 042
     Dates: start: 20120313, end: 20120619
  3. AVASTIN [Suspect]
     Indication: BREAST CANCER METASTATIC
     Dosage: 890 MILLIGRAM DAILY;
     Route: 042
     Dates: start: 20120313, end: 20120821
  4. CLONIDINE [Concomitant]
     Dosage: .025 MILLIGRAM DAILY;
     Dates: start: 20120223
  5. METOCLOPRAMIDE [Concomitant]
     Dosage: 30 MILLIGRAM DAILY;
     Dates: start: 20120302
  6. COMBIVENT [Concomitant]
     Dates: start: 20120223
  7. LOSARTAN [Concomitant]
     Dosage: 100 MILLIGRAM DAILY;
     Dates: start: 20120907

REACTIONS (1)
  - Lymphangiosis carcinomatosa [Fatal]
